FAERS Safety Report 15904965 (Version 1)
Quarter: 2019Q1

REPORT INFORMATION
  Report Type: Spontaneous
  Country: NL (occurrence: NL)
  Receive Date: 20190204
  Receipt Date: 20190204
  Transmission Date: 20190417
  Serious: Yes (Other)
  Sender: FDA-Public Use
  Company Number: NL-AUROBINDO-AUR-APL-2019-005023

PATIENT

DRUGS (2)
  1. TYLENOL [Suspect]
     Active Substance: ACETAMINOPHEN
     Indication: PRODUCT USED FOR UNKNOWN INDICATION
     Dosage: 1500 MILLIGRAM, DAILY, DOSAGE FORM: UNSPECIFIED, 3 X PER DAY
     Route: 065
  2. PARACETAMOL TABLET [Suspect]
     Active Substance: ACETAMINOPHEN
     Indication: PRODUCT USED FOR UNKNOWN INDICATION
     Dosage: 1500 MILLIGRAM, DAILY, DOSAGE FORM: UNSPECIFIED, LIQUID AND CRUSHED TABLET THROUGH A FEEDING TUBE
     Route: 065

REACTIONS (3)
  - Abnormal faeces [Unknown]
  - Toxicity to various agents [Unknown]
  - Seizure [Unknown]
